FAERS Safety Report 10025519 (Version 1)
Quarter: 2014Q1

REPORT INFORMATION
  Report Type: Spontaneous
  Country: US (occurrence: None)
  Receive Date: 20140319
  Receipt Date: 20140319
  Transmission Date: 20141002
  Serious: Yes (Life-Threatening, Hospitalization)
  Sender: FDA-Public Use
  Company Number: None

PATIENT
  Age: 55 Year
  Sex: Male
  Weight: 89.4 kg

DRUGS (1)
  1. INDOMETHACIN [Suspect]
     Indication: PAIN
     Route: 048
     Dates: start: 20140108, end: 20140110

REACTIONS (5)
  - Lip swelling [None]
  - Swollen tongue [None]
  - Palatal oedema [None]
  - Choking sensation [None]
  - Angioedema [None]
